FAERS Safety Report 5273304-0 (Version None)
Quarter: 2007Q1

REPORT INFORMATION
  Report Type: 
  Country: None (occurrence: None)
  Receive Date: 20070319
  Receipt Date: 20070307
  Transmission Date: 20070707
  Serious: Yes (Other)
  Sender: FDA-Public Use
  Company Number: GXKR2007ES02346

PATIENT
  Age: 61 Year
  Sex: Female

DRUGS (2)
  1. IBUPROFEN [Suspect]
     Indication: TOOTH INFECTION
  2. ERYTHROMYCIN [Concomitant]

REACTIONS (3)
  - DERMATITIS BULLOUS [None]
  - DRUG ERUPTION [None]
  - SKIN TEST POSITIVE [None]
